FAERS Safety Report 7353026-2 (Version None)
Quarter: 2011Q1

REPORT INFORMATION
  Report Type: 
  Country: None (occurrence: None)
  Receive Date: 20110315
  Receipt Date: 20110307
  Transmission Date: 20110831
  Serious: Yes (Other)
  Sender: FDA-Public Use
  Company Number: A0917864A

PATIENT
  Age: 45 Year
  Sex: Male
  Weight: 74.8 kg

DRUGS (7)
  1. COUMADIN [Concomitant]
  2. FLOLAN [Suspect]
     Route: 065
     Dates: start: 20100610
  3. REVATIO [Concomitant]
  4. FUROSEMIDE [Concomitant]
  5. METHOTREXATE [Concomitant]
  6. PREDNISONE [Concomitant]
  7. POTASSIUM CHLORIDE [Concomitant]

REACTIONS (5)
  - SUICIDAL IDEATION [None]
  - EMOTIONAL DISTRESS [None]
  - ANXIETY [None]
  - DEPRESSED MOOD [None]
  - DEMENTIA [None]
